FAERS Safety Report 8579574-5 (Version None)
Quarter: 2012Q3

REPORT INFORMATION
  Report Type: 
  Country: None (occurrence: None)
  Receive Date: 20120808
  Receipt Date: 20120807
  Transmission Date: 20120928
  Serious: Yes (Hospitalization)
  Sender: FDA-Public Use
  Company Number: PHHO2012FR008707

PATIENT
  Sex: Female
  Weight: 63.5 kg

DRUGS (3)
  1. AFINITOR [Suspect]
     Indication: LYMPHANGIOLEIOMYOMATOSIS
     Dosage: CODE NOT BROKEN
     Route: 048
     Dates: start: 20101206, end: 20110913
  2. BLINDED NO TREATMENT RECEIVED [Suspect]
     Indication: LYMPHANGIOLEIOMYOMATOSIS
     Dosage: CODE NOT BROKEN
     Route: 048
     Dates: start: 20101206, end: 20110913
  3. PLACEBO [Suspect]
     Indication: LYMPHANGIOLEIOMYOMATOSIS
     Dosage: CODE NOT BROKEN
     Route: 048
     Dates: start: 20101206, end: 20110913

REACTIONS (1)
  - BREAST HYPOPLASIA [None]
